FAERS Safety Report 10427641 (Version 1)
Quarter: 2014Q3

REPORT INFORMATION
  Report Type: Spontaneous
  Country: JP (occurrence: JP)
  Receive Date: 20140903
  Receipt Date: 20140903
  Transmission Date: 20150326
  Serious: Yes (Other)
  Sender: FDA-Public Use
  Company Number: PHHY2012JP135336

PATIENT
  Age: 77 Year
  Sex: Female

DRUGS (4)
  1. EXJADE [Suspect]
     Active Substance: DEFERASIROX
     Dosage: 125 MG, UNK
     Dates: start: 200902
  2. EXJADE [Suspect]
     Active Substance: DEFERASIROX
     Dosage: 250 MG, UNK
     Dates: start: 201101
  3. EXJADE [Suspect]
     Active Substance: DEFERASIROX
     Indication: IRON OVERLOAD
     Dosage: 1000 MG, DAILY
     Dates: start: 200808
  4. EXJADE [Suspect]
     Active Substance: DEFERASIROX
     Dosage: 375 MG, UNK
     Dates: start: 201109

REACTIONS (3)
  - Purpura [Unknown]
  - Rash [Unknown]
  - Pancytopenia [Unknown]
